FAERS Safety Report 5338218-6 (Version None)
Quarter: 2007Q2

REPORT INFORMATION
  Report Type: 
  Country: None (occurrence: None)
  Receive Date: 20070327
  Receipt Date: 20070201
  Transmission Date: 20071010
  Serious: No
  Sender: FDA-Public Use
  Company Number: 234030

PATIENT
  Age: 71 Year
  Sex: Male
  Weight: 112.5 kg

DRUGS (4)
  1. AVASTIN [Suspect]
     Indication: COLON CANCER
     Dosage: 563 MG, Q2W, INTRAVENOUS
     Route: 042
     Dates: start: 20060621
  2. FOLONIC ACID(LEUCOVORIN CALCIUM) [Suspect]
     Indication: COLON CANCER
  3. FLUOROURACIL [Suspect]
     Indication: COLON CANCER
  4. OXALIPLATIN [Suspect]
     Indication: COLON CANCER

REACTIONS (1)
  - PLATELET COUNT DECREASED [None]
